FAERS Safety Report 7603742-X (Version None)
Quarter: 2011Q3

REPORT INFORMATION
  Report Type: 
  Country: None (occurrence: None)
  Receive Date: 20110712
  Receipt Date: 20110620
  Transmission Date: 20111222
  Serious: Yes (Death, Hospitalization)
  Sender: FDA-Public Use
  Company Number: US-GLAXOSMITHKLINE-A0806398A

PATIENT
  Age: 68 Year
  Sex: Female

DRUGS (10)
  1. AVANDIA [Suspect]
     Indication: TYPE 2 DIABETES MELLITUS
     Route: 048
  2. GLIPIZIDE [Concomitant]
  3. METOPROLOL TARTRATE [Concomitant]
  4. VYTORIN [Concomitant]
  5. LEVOTHYROXINE SODIUM [Concomitant]
  6. AVAPRO [Concomitant]
  7. AVANDAMET [Suspect]
     Indication: DIABETES MELLITUS
     Route: 048
  8. PREDNISONE [Concomitant]
  9. BACTRIM [Concomitant]
  10. METFORMIN HCL [Concomitant]

REACTIONS (6)
  - HEPATIC ENCEPHALOPATHY [None]
  - CORONARY ARTERY DISEASE [None]
  - PULMONARY FIBROSIS [None]
  - HEPATIC FAILURE [None]
  - HEPATIC CIRRHOSIS [None]
  - MYOCARDIAL INFARCTION [None]
